FAERS Safety Report 5942635-0 (Version None)
Quarter: 2008Q4

REPORT INFORMATION
  Report Type: 
  Country: None (occurrence: None)
  Receive Date: 20081103
  Receipt Date: 20081031
  Transmission Date: 20090506
  Serious: Yes (Death)
  Sender: FDA-Public Use
  Company Number: 2008S1000294

PATIENT
  Age: 59 Year
  Sex: Male

DRUGS (16)
  1. CUBICIN [Suspect]
     Indication: AORTITIS
     Dosage: 250 MG;Q48H;IV
     Route: 042
     Dates: start: 20080404, end: 20080502
  2. CUBICIN [Suspect]
     Indication: STAPHYLOCOCCAL BACTERAEMIA
     Dosage: 250 MG;Q48H;IV
     Route: 042
     Dates: start: 20080404, end: 20080502
  3. LINEZOLID [Concomitant]
  4. VANCOMYCIN [Concomitant]
  5. FUSIDATE SODIUM [Concomitant]
  6. ROPINIROLE [Concomitant]
  7. HYDROCHLORIDE [Concomitant]
  8. LAMIVUDINE [Concomitant]
  9. CIPROFLOXACIN [Concomitant]
  10. NIFEDIPINE [Concomitant]
  11. BISOPROLOL FUMARATE [Concomitant]
  12. ACETAMINOPHEN [Concomitant]
  13. CAPTOPRIL [Concomitant]
  14. TACROLIMUS [Concomitant]
  15. CELLCEPT [Concomitant]
  16. MISOPROSTOL [Concomitant]

REACTIONS (22)
  - ACUTE RESPIRATORY DISTRESS SYNDROME [None]
  - ANTIMICROBIAL SUSCEPTIBILITY TEST RESISTANT [None]
  - BLOOD PRESSURE INCREASED [None]
  - BRADYCARDIA [None]
  - BREATH SOUNDS ABNORMAL [None]
  - DRUG INEFFECTIVE [None]
  - DYSPNOEA EXERTIONAL [None]
  - GOITRE [None]
  - HAEMATURIA [None]
  - HYPOTENSION [None]
  - INFECTIVE ANEURYSM [None]
  - LOCALISED OEDEMA [None]
  - LUNG INFILTRATION [None]
  - MINIMUM INHIBITORY CONCENTRATION [None]
  - MYDRIASIS [None]
  - OFF LABEL USE [None]
  - PLEURAL EFFUSION [None]
  - PROCEDURAL COMPLICATION [None]
  - SEPTIC SHOCK [None]
  - STAPHYLOCOCCAL BACTERAEMIA [None]
  - THROMBOCYTOPENIA [None]
  - URINE OUTPUT DECREASED [None]
